FAERS Safety Report 7589127-3 (Version None)
Quarter: 2011Q3

REPORT INFORMATION
  Report Type: 
  Country: None (occurrence: None)
  Receive Date: 20110705
  Receipt Date: 20110621
  Transmission Date: 20111222
  Serious: Yes (Other)
  Sender: FDA-Public Use
  Company Number: US-BAYER-2011-024525

PATIENT
  Age: 22 Year
  Sex: Female
  Weight: 111.11 kg

DRUGS (4)
  1. YASMIN [Suspect]
     Indication: MENSTRUATION IRREGULAR
  2. YASMIN [Suspect]
     Indication: DYSFUNCTIONAL UTERINE BLEEDING
     Dosage: UNK
  3. YAZ [Suspect]
     Indication: DYSFUNCTIONAL UTERINE BLEEDING
     Dosage: UNK
     Dates: start: 20030101, end: 20080101
  4. YAZ [Suspect]
     Indication: MENSTRUATION IRREGULAR

REACTIONS (5)
  - CHOLECYSTITIS CHRONIC [None]
  - PANCREATITIS [None]
  - INJURY [None]
  - GALLBLADDER DISORDER [None]
  - PAIN [None]
